FAERS Safety Report 4332675-X (Version None)
Quarter: 2004Q1

REPORT INFORMATION
  Report Type: 
  Country: None (occurrence: None)
  Receive Date: 20040330
  Receipt Date: 20040319
  Transmission Date: 20041129
  Serious: Yes (Hospitalization)
  Sender: FDA-Public Use
  Company Number: 2004CG00583

PATIENT
  Age: 53 Year
  Sex: Male

DRUGS (2)
  1. ZOLTUM [Suspect]
     Dates: start: 20000115, end: 20000620
  2. KARDEGIC/FRA/ [Suspect]
     Dates: start: 20000205, end: 20000620

REACTIONS (3)
  - HAEMATEMESIS [None]
  - MELAENA [None]
  - OESOPHAGEAL ULCER [None]
